FAERS Safety Report 13068468 (Version 1)
Quarter: 2016Q4

REPORT INFORMATION
  Report Type: Spontaneous
  Country: US (occurrence: US)
  Receive Date: 20161227
  Receipt Date: 20161227
  Transmission Date: 20170207
  Serious: Yes (Other)
  Sender: FDA-Public Use
  Company Number: None

PATIENT
  Age: 61 Year
  Sex: Female
  Weight: 67.95 kg

DRUGS (1)
  1. ESOMEPRAZOLE MAGNESIUM DELAYED- DR REDDY^S [Suspect]
     Active Substance: ESOMEPRAZOLE MAGNESIUM
     Indication: GASTROOESOPHAGEAL REFLUX DISEASE
     Route: 048
     Dates: start: 20160401

REACTIONS (4)
  - Product substitution issue [None]
  - Nausea [None]
  - Drug ineffective [None]
  - Malaise [None]

NARRATIVE: CASE EVENT DATE: 20160401
